FAERS Safety Report 12953813 (Version 2)
Quarter: 2016Q4

REPORT INFORMATION
  Report Type: Report from Study
  Country: CA (occurrence: CA)
  Receive Date: 20161118
  Receipt Date: 20161121
  Transmission Date: 20170207
  Serious: Yes (Death, Hospitalization, Other)
  Sender: FDA-Public Use
  Company Number: CA-AMGEN-CANNI2016163386

PATIENT
  Age: 77 Year
  Sex: Male

DRUGS (1)
  1. CARFILZOMIB [Suspect]
     Active Substance: CARFILZOMIB
     Indication: PRODUCT USED FOR UNKNOWN INDICATION
     Dosage: 40 UNK, DAY 1, 2, 8, AND 9
     Route: 042
     Dates: start: 20160111, end: 20160119

REACTIONS (2)
  - Myeloma cast nephropathy [Fatal]
  - Hypercalcaemia [Fatal]

NARRATIVE: CASE EVENT DATE: 201601
